FAERS Safety Report 9800886 (Version 2)
Quarter: 2014Q2

REPORT INFORMATION
  Report Type: Spontaneous
  Country: BH (occurrence: BH)
  Receive Date: 20140107
  Receipt Date: 20140429
  Transmission Date: 20141212
  Serious: Yes (Hospitalization, Other)
  Sender: FDA-Public Use
  Company Number: BH-JNJFOC-20140100430

PATIENT
  Age: 35 Year
  Sex: Male

DRUGS (2)
  1. REMICADE [Suspect]
     Indication: PSORIASIS
     Dosage: 2ND DOSE, 2ND WEEK
     Route: 042
     Dates: start: 20131213, end: 20131214
  2. REMICADE [Suspect]
     Indication: PSORIASIS
     Dosage: 1ST DOSE, 0 WEEK
     Route: 042
     Dates: start: 20131127

REACTIONS (11)
  - Rash erythematous [Recovered/Resolved]
  - Platelet count decreased [Recovered/Resolved]
  - Ecchymosis [Recovered/Resolved]
  - Angioedema [Recovered/Resolved]
  - Infusion related reaction [Recovered/Resolved]
  - Palpitations [Recovered/Resolved]
  - Pruritus [Recovered/Resolved]
  - Headache [Recovered/Resolved]
  - Dyspnoea [Recovered/Resolved]
  - Face oedema [Recovered/Resolved]
  - Tachycardia [Recovered/Resolved]
